FAERS Safety Report 14700566 (Version 1)
Quarter: 2018Q1

REPORT INFORMATION
  Report Type: Spontaneous
  Country: US (occurrence: US)
  Receive Date: 20180330
  Receipt Date: 20180330
  Transmission Date: 20180509
  Serious: Yes (Hospitalization, Other)
  Sender: FDA-Public Use
  Company Number: US-ASTRAZENECA-2018SE38483

PATIENT
  Age: 29171 Day
  Sex: Female
  Weight: 102.1 kg

DRUGS (9)
  1. CRESTOR [Suspect]
     Active Substance: ROSUVASTATIN CALCIUM
     Indication: SUPPLEMENTATION THERAPY
     Route: 048
     Dates: start: 20180321
  2. SIMVASTATIN. [Suspect]
     Active Substance: SIMVASTATIN
     Route: 048
  3. APRISO [Concomitant]
     Active Substance: MESALAMINE
     Indication: COLITIS ULCERATIVE
     Dosage: THREE TIMES A DAY
     Route: 048
  4. FUROSEMIDE. [Concomitant]
     Active Substance: FUROSEMIDE
     Indication: PERIPHERAL SWELLING
     Route: 048
  5. FERROUS SULFATE. [Concomitant]
     Active Substance: FERROUS SULFATE
     Route: 048
  6. METOPROLOL TARTRATE. [Suspect]
     Active Substance: METOPROLOL TARTRATE
     Route: 048
  7. CRESTOR [Suspect]
     Active Substance: ROSUVASTATIN CALCIUM
     Indication: SUPPLEMENTATION THERAPY
     Route: 048
  8. PANTOPRAZOLE [Concomitant]
     Active Substance: PANTOPRAZOLE
  9. VITAMIN D3 [Concomitant]
     Active Substance: CHOLECALCIFEROL
     Route: 048

REACTIONS (13)
  - Hypersensitivity [Unknown]
  - Product use in unapproved indication [Unknown]
  - Dizziness [Unknown]
  - Skin cancer [Unknown]
  - Diabetes mellitus [Unknown]
  - Gait disturbance [Recovered/Resolved]
  - Cardiac disorder [Unknown]
  - Thinking abnormal [Unknown]
  - Anxiety [Unknown]
  - Balance disorder [Unknown]
  - Pulmonary congestion [Unknown]
  - Memory impairment [Unknown]
  - Off label use [Unknown]

NARRATIVE: CASE EVENT DATE: 20180322
